FAERS Safety Report 9180659 (Version 2)
Quarter: 2013Q2

REPORT INFORMATION
  Report Type: Spontaneous
  Country: US (occurrence: None)
  Receive Date: 20130320
  Receipt Date: 20130506
  Transmission Date: 20140414
  Serious: Yes (Hospitalization, Other)
  Sender: FDA-Public Use
  Company Number: 2013P1003162

PATIENT
  Age: 69 Year
  Sex: Female

DRUGS (9)
  1. INFUMORPH [Suspect]
     Indication: PAIN
     Dates: start: 20021031, end: 20021031
  2. INFUMORPH [Suspect]
     Indication: POST LAMINECTOMY SYNDROME
     Dates: start: 20021031, end: 20021031
  3. PREMARIN [Concomitant]
  4. NORVASC [Concomitant]
  5. PAXIL [Concomitant]
  6. XANAX [Concomitant]
  7. ROXYCODONE [Concomitant]
  8. UNSPECIFIED IV MEDICATIONS [Suspect]
  9. UNSPECIFIEDMORAL SEDATIVES [Suspect]

REACTIONS (13)
  - Fall [None]
  - Hip fracture [None]
  - Influenza like illness [None]
  - Pain threshold decreased [None]
  - Device breakage [None]
  - Withdrawal syndrome [None]
  - Nausea [None]
  - Vomiting [None]
  - Overdose [None]
  - Tremor [None]
  - Hyperhidrosis [None]
  - Back pain [None]
  - Atrial fibrillation [None]
